FAERS Safety Report 18320282 (Version 4)
Quarter: 2020Q4

REPORT INFORMATION
  Report Type: Report from Study
  Country: NL (occurrence: NL)
  Receive Date: 20200928
  Receipt Date: 20201211
  Transmission Date: 20210113
  Serious: Yes (Hospitalization, Other)
  Sender: FDA-Public Use
  Company Number: NL-CELGENEUS-NLD-20200905947

PATIENT
  Age: 69 Year
  Sex: Male

DRUGS (42)
  1. FUROSEMIDE. [Concomitant]
     Active Substance: FUROSEMIDE
     Indication: OEDEMA
     Dosage: 20 MILLIGRAM
     Route: 048
     Dates: start: 20200815, end: 20200816
  2. FUROSEMIDE. [Concomitant]
     Active Substance: FUROSEMIDE
     Indication: DYSPNOEA
     Dosage: 40 MILLIGRAM
     Route: 048
     Dates: start: 20200820, end: 20200821
  3. FUROSEMIDE. [Concomitant]
     Active Substance: FUROSEMIDE
     Dosage: 40 MILLIGRAM
     Route: 048
     Dates: start: 20200826, end: 20200827
  4. VANCOMYCIN [Concomitant]
     Active Substance: VANCOMYCIN
     Indication: PYREXIA
     Dosage: 3750 MILLIGRAM
     Route: 041
     Dates: start: 20200816, end: 20200816
  5. ALLOPURINOL. [Concomitant]
     Active Substance: ALLOPURINOL
     Indication: PROPHYLAXIS
  6. CEFTAZIDIME. [Concomitant]
     Active Substance: CEFTAZIDIME
     Indication: FEBRILE NEUTROPENIA
     Dosage: 6000 MILLIGRAM
     Route: 041
     Dates: start: 20200825, end: 20200907
  7. CIPROFLOXACIN. [Concomitant]
     Active Substance: CIPROFLOXACIN
     Route: 048
     Dates: start: 20200910, end: 20200912
  8. FUROSEMIDE. [Concomitant]
     Active Substance: FUROSEMIDE
     Dosage: 40 MILLIGRAM
     Route: 048
     Dates: start: 20200824, end: 20200825
  9. PHENETICILLIN [Concomitant]
     Active Substance: PHENETICILLIN
     Indication: PROPHYLACTIC CHEMOTHERAPY
     Dosage: 2000 MILLIGRAM
     Route: 048
     Dates: start: 20200824, end: 20200908
  10. FLUCONAZOLE. [Concomitant]
     Active Substance: FLUCONAZOLE
     Indication: CANDIDA INFECTION
     Dosage: 20 MILLIGRAM
     Route: 048
     Dates: start: 20200831, end: 20200831
  11. CEFUROXIME. [Concomitant]
     Active Substance: CEFUROXIME
     Indication: PYREXIA
  12. MACROGOL/ZOUTEN PDR [Concomitant]
     Indication: CONSTIPATION
     Route: 048
     Dates: start: 20200807, end: 20201105
  13. FUROSEMIDE. [Concomitant]
     Active Substance: FUROSEMIDE
     Dosage: 40 MILLIGRAM
     Route: 067
     Dates: start: 20200831, end: 20200907
  14. CYTARABINE. [Suspect]
     Active Substance: CYTARABINE
     Indication: ACUTE MYELOID LEUKAEMIA
     Dosage: 4400 MILLIGRAM
     Route: 065
     Dates: start: 20200708, end: 20200828
  15. FUROSEMIDE. [Concomitant]
     Active Substance: FUROSEMIDE
     Route: 048
     Dates: start: 20200907, end: 20200908
  16. CIPROFLOXACIN. [Concomitant]
     Active Substance: CIPROFLOXACIN
     Indication: PYREXIA
     Dosage: 800 MILLIGRAM
     Route: 041
     Dates: start: 20200909, end: 20200910
  17. TOBRAMYCINE [Concomitant]
     Active Substance: TOBRAMYCIN SULFATE
     Indication: FEBRILE NEUTROPENIA
     Dosage: 360 MILLIGRAM
     Route: 048
     Dates: start: 20200827, end: 20200907
  18. CEFUROXIME. [Concomitant]
     Active Substance: CEFUROXIME
     Indication: FEBRILE NEUTROPENIA
     Dosage: 4500 MILLIGRAM
     Route: 041
     Dates: start: 20200909, end: 20200912
  19. DAUNORUBICIN [Suspect]
     Active Substance: DAUNORUBICIN
     Indication: ACUTE MYELOID LEUKAEMIA
     Dosage: 130 MILLIGRAM
     Route: 065
     Dates: start: 20200708, end: 20200710
  20. PARACETAMOL [Concomitant]
     Active Substance: ACETAMINOPHEN
     Indication: PROPHYLACTIC CHEMOTHERAPY
     Dosage: 2000 MILLIGRAM
     Route: 048
     Dates: start: 20200807, end: 20200912
  21. FUROSEMIDE. [Concomitant]
     Active Substance: FUROSEMIDE
     Dosage: 40 MILLIGRAM
     Route: 041
     Dates: start: 20200822, end: 20200828
  22. FUROSEMIDE. [Concomitant]
     Active Substance: FUROSEMIDE
     Route: 048
     Dates: start: 20200904, end: 20200904
  23. VANCOMYCIN [Concomitant]
     Active Substance: VANCOMYCIN
     Dosage: 3.5 GRAM
     Route: 041
     Dates: start: 20200825, end: 20200907
  24. VANCOMYCIN [Concomitant]
     Active Substance: VANCOMYCIN
     Dosage: 200 MILLIGRAM
     Route: 041
     Dates: start: 20200827, end: 20200827
  25. CALCIUM CHLORIDE. [Concomitant]
     Active Substance: CALCIUM CHLORIDE
     Indication: HYPOKALAEMIA
     Dosage: 58.15 MMOL/DG
     Route: 041
     Dates: start: 20200817, end: 20200821
  26. TOBRAMYCINE [Concomitant]
     Active Substance: TOBRAMYCIN SULFATE
     Indication: PYREXIA
  27. AG-221 [Suspect]
     Active Substance: ENASIDENIB
     Indication: ACUTE MYELOID LEUKAEMIA
     Dosage: 100 MILLIGRAM
     Route: 048
     Dates: start: 20200708, end: 2020
  28. NADROPARINE [Concomitant]
     Active Substance: NADROPARIN
     Indication: HOSPITALISATION
     Dosage: 2850 IE/0.3 ML
     Route: 058
     Dates: start: 20200807, end: 20200825
  29. FUROSEMIDE. [Concomitant]
     Active Substance: FUROSEMIDE
     Route: 048
     Dates: start: 20200831, end: 20200831
  30. CALCIUM CHLORIDE. [Concomitant]
     Active Substance: CALCIUM CHLORIDE
     Dosage: 38.77 MMOL/DG
     Route: 041
     Dates: start: 20200828, end: 20200831
  31. GRANISETRON [Concomitant]
     Active Substance: GRANISETRON
     Indication: PROPHYLACTIC CHEMOTHERAPY
     Dosage: 1 MILLIGRAM
     Route: 041
     Dates: start: 20200819, end: 20200825
  32. CIPROFLOXACIN. [Concomitant]
     Active Substance: CIPROFLOXACIN
     Indication: FEBRILE NEUTROPENIA
     Route: 048
     Dates: start: 20200827, end: 20200907
  33. AG-221 [Suspect]
     Active Substance: ENASIDENIB
     Dosage: 100 MILLIGRAM
     Route: 048
     Dates: start: 20200819, end: 20200917
  34. VANCOMYCIN [Concomitant]
     Active Substance: VANCOMYCIN
     Indication: FEBRILE NEUTROPENIA
     Dosage: 2500 MILLIGRAM
     Route: 041
     Dates: start: 20200815, end: 20200816
  35. CALCIUM CHLORIDE. [Concomitant]
     Active Substance: CALCIUM CHLORIDE
     Dosage: 40 MMOL/DG
     Route: 041
     Dates: start: 20200831, end: 20200907
  36. ALLOPURINOL. [Concomitant]
     Active Substance: ALLOPURINOL
     Indication: OEDEMA
     Route: 048
     Dates: start: 20200819, end: 20200826
  37. DEXAMETHASONE. [Concomitant]
     Active Substance: DEXAMETHASONE
     Indication: PROPHYLACTIC CHEMOTHERAPY
     Route: 048
     Dates: start: 20200819, end: 20200825
  38. METOCLOPRAMIDE. [Concomitant]
     Active Substance: METOCLOPRAMIDE
     Dosage: 10 MILLIGRAM
     Route: 048
     Dates: start: 20200824, end: 20200824
  39. CEFTAZIDIME. [Concomitant]
     Active Substance: CEFTAZIDIME
     Indication: PYREXIA
  40. CYTARABINE. [Suspect]
     Active Substance: CYTARABINE
     Dosage: 4400 MILLIGRAM
     Route: 065
     Dates: start: 20200819, end: 20200825
  41. METOCLOPRAMIDE. [Concomitant]
     Active Substance: METOCLOPRAMIDE
     Indication: PROPHYLACTIC CHEMOTHERAPY
     Dosage: 30 MILLIGRAM
     Route: 048
     Dates: start: 20200819, end: 20200824
  42. AMPHOTERICIN B. [Concomitant]
     Active Substance: AMPHOTERICIN B
     Indication: CANDIDA INFECTION
     Dosage: 30 MILLIGRAM
     Route: 048
     Dates: start: 20200902, end: 20200907

REACTIONS (1)
  - Cardiac failure [Not Recovered/Not Resolved]

NARRATIVE: CASE EVENT DATE: 20200917
